FAERS Safety Report 4646451-1 (Version None)
Quarter: 2005Q2

REPORT INFORMATION
  Report Type: 
  Country: None (occurrence: None)
  Receive Date: 20050427
  Receipt Date: 20040310
  Transmission Date: 20051028
  Serious: No
  Sender: FDA-Public Use
  Company Number: US-GLAXOSMITHKLINE-A0502167A

PATIENT
  Age: 40 Year
  Sex: Female
  Weight: 45 kg

DRUGS (3)
  1. FLOVENT [Suspect]
     Indication: ASTHMA
     Route: 055
  2. VENTOLIN HFA [Concomitant]
  3. SEREVENT [Concomitant]

REACTIONS (1)
  - INSOMNIA [None]
